FAERS Safety Report 18910736 (Version 3)
Quarter: 2022Q1

REPORT INFORMATION
  Report Type: Spontaneous
  Country: US (occurrence: None)
  Receive Date: 20210218
  Receipt Date: 20220214
  Transmission Date: 20220424
  Serious: Yes (Other)
  Sender: FDA-Public Use
  Company Number: US-ROCHE-2710770

PATIENT
  Sex: Female

DRUGS (2)
  1. XELODA [Suspect]
     Active Substance: CAPECITABINE
     Indication: Product used for unknown indication
     Route: 065
  2. TUKYSA [Suspect]
     Active Substance: TUCATINIB
     Indication: Product used for unknown indication
     Route: 065

REACTIONS (7)
  - Tumour haemorrhage [Unknown]
  - Burning sensation [Unknown]
  - Pain in extremity [Unknown]
  - Confusional state [Unknown]
  - Chest pain [Unknown]
  - Pain [Unknown]
  - Tumour rupture [Unknown]
